FAERS Safety Report 7601604-5 (Version None)
Quarter: 2011Q3

REPORT INFORMATION
  Report Type: 
  Country: None (occurrence: None)
  Receive Date: 20110711
  Receipt Date: 20110701
  Transmission Date: 20111222
  Serious: Yes (Hospitalization)
  Sender: FDA-Public Use
  Company Number: PHHY2011US59630

PATIENT
  Age: 52 Year
  Sex: Female
  Weight: 115.65 kg

DRUGS (2)
  1. TOBI [Suspect]
     Dosage: 300 MG, BID (IN A CYCLE OF 28 DAYS ON AND 28 DAYS OFF)
     Dates: start: 20100922
  2. PULMOZYME [Concomitant]

REACTIONS (1)
  - LUNG DISORDER [None]
